FAERS Safety Report 7296670-3 (Version None)
Quarter: 2011Q1

REPORT INFORMATION
  Report Type: 
  Country: None (occurrence: None)
  Receive Date: 20110216
  Receipt Date: 20110214
  Transmission Date: 20110831
  Serious: Yes (Death)
  Sender: FDA-Public Use
  Company Number: PHHY2011JP08618

PATIENT
  Age: 33 Year
  Sex: Female

DRUGS (4)
  1. METHYLPREDNISOLONE [Concomitant]
     Indication: RENAL TRANSPLANT
     Dosage: 8 MG
  2. AZATHIOPRINE [Concomitant]
     Indication: RENAL TRANSPLANT
     Dosage: 75 MG
  3. ANTILYMPHOCYTE IMMUNOGLOBULIN [Concomitant]
     Indication: RENAL TRANSPLANT
  4. CYCLOPHOSPHAMIDE [Suspect]
     Indication: RENAL TRANSPLANT
     Dosage: 150 MG

REACTIONS (2)
  - SKIN MASS [None]
  - EPSTEIN-BARR VIRUS ASSOCIATED LYMPHOPROLIFERATIVE DISORDER [None]
